FAERS Safety Report 4831425-8 (Version None)
Quarter: 2005Q4

REPORT INFORMATION
  Report Type: 
  Country: None (occurrence: None)
  Receive Date: 20051118
  Receipt Date: 20050922
  Transmission Date: 20060501
  Serious: Yes (Hospitalization, Other)
  Sender: FDA-Public Use
  Company Number: DE-BRISTOL-MYERS SQUIBB COMPANY-13139787

PATIENT
  Sex: Male

DRUGS (8)
  1. ZERIT [Suspect]
     Indication: HIV INFECTION
     Dosage: RESTARTED ON 31-MAR-2004
     Dates: start: 19990423
  2. REYATAZ [Suspect]
     Indication: HIV INFECTION
     Dates: start: 20040331
  3. ABACAVIR SULFATE [Suspect]
     Indication: HIV INFECTION
     Dosage: RESTARTED 31-MAR-2004
     Dates: start: 20010409
  4. LAMIVUDINE [Suspect]
     Indication: HIV INFECTION
     Dosage: RESTARTED ON 09-APR-2001, RESTARTED AGAIN 31-MAR-2004
     Dates: start: 19990423
  5. TENOFOVIR [Suspect]
  6. LOPINAVIR + RITONAVIR [Suspect]
     Indication: HIV INFECTION
     Dates: start: 20010409
  7. SAQUINAVIR [Suspect]
  8. RITONAVIR [Suspect]
     Indication: HIV INFECTION
     Dates: start: 20040331

REACTIONS (5)
  - ALVEOLITIS [None]
  - COUGH [None]
  - IMMUNE RECONSTITUTION SYNDROME [None]
  - LIPOATROPHY [None]
  - PYREXIA [None]
